FAERS Safety Report 12735054 (Version 5)
Quarter: 2017Q2

REPORT INFORMATION
  Report Type: Spontaneous
  Country: US (occurrence: US)
  Receive Date: 20160912
  Receipt Date: 20170524
  Transmission Date: 20170830
  Serious: Yes (Hospitalization, Other)
  Sender: FDA-Public Use
  Company Number: US-PFIZER INC-2016422152

PATIENT
  Age: 51 Year
  Sex: Female
  Weight: 47.62 kg

DRUGS (6)
  1. CLONAZEPAM. [Concomitant]
     Active Substance: CLONAZEPAM
     Indication: POST-TRAUMATIC STRESS DISORDER
     Dosage: 1 MG, 1X/DAY (MORNING)
     Dates: start: 2013
  2. GEODON [Suspect]
     Active Substance: ZIPRASIDONE HYDROCHLORIDE\ZIPRASIDONE MESYLATE
     Indication: ANXIETY
  3. PRAZOSIN. [Concomitant]
     Active Substance: PRAZOSIN
     Dosage: 2 MG, 1X/DAY (NIGHT)
  4. GEODON [Suspect]
     Active Substance: ZIPRASIDONE HYDROCHLORIDE\ZIPRASIDONE MESYLATE
     Indication: TREMOR
     Dosage: 80 MG, 1X/DAY
     Route: 048
     Dates: start: 2013, end: 20160705
  5. GEODON [Suspect]
     Active Substance: ZIPRASIDONE HYDROCHLORIDE\ZIPRASIDONE MESYLATE
     Indication: POST-TRAUMATIC STRESS DISORDER
  6. VENLAFAXINE [Concomitant]
     Active Substance: VENLAFAXINE HYDROCHLORIDE
     Indication: POST-TRAUMATIC STRESS DISORDER
     Dosage: 150 MG, 1X/DAY (MORNING )
     Route: 048
     Dates: start: 2013

REACTIONS (24)
  - Choking [Unknown]
  - Cerebral palsy [Unknown]
  - Speech disorder [Not Recovered/Not Resolved]
  - Amnesia [Unknown]
  - Withdrawal syndrome [Unknown]
  - Tremor [Not Recovered/Not Resolved]
  - Gait disturbance [Not Recovered/Not Resolved]
  - Insomnia [Unknown]
  - Drug ineffective for unapproved indication [Not Recovered/Not Resolved]
  - Tongue oedema [Unknown]
  - Dystonia [Unknown]
  - Weight increased [Unknown]
  - Dysphagia [Unknown]
  - Dyskinesia [Not Recovered/Not Resolved]
  - Loss of personal independence in daily activities [Not Recovered/Not Resolved]
  - Asthenia [Recovered/Resolved]
  - Weight decreased [Recovered/Resolved]
  - Hyperhidrosis [Unknown]
  - Extrapyramidal disorder [Recovered/Resolved]
  - Balance disorder [Unknown]
  - Decreased appetite [Unknown]
  - Ataxia [Unknown]
  - Drooling [Unknown]
  - Abasia [Not Recovered/Not Resolved]

NARRATIVE: CASE EVENT DATE: 2013
